FAERS Safety Report 21871052 (Version 2)
Quarter: 2023Q1

REPORT INFORMATION
  Report Type: Spontaneous
  Country: JP (occurrence: JP)
  Receive Date: 20230117
  Receipt Date: 20230329
  Transmission Date: 20230418
  Serious: Yes (Other)
  Sender: FDA-Public Use
  Company Number: JP-ASTELLAS-2023JP000149

PATIENT
  Sex: Male

DRUGS (9)
  1. XTANDI [Suspect]
     Active Substance: ENZALUTAMIDE
     Indication: Prostate cancer
     Dosage: UNK UNK, UNKNOWN FREQ.
     Route: 048
     Dates: start: 202212
  2. XTANDI [Suspect]
     Active Substance: ENZALUTAMIDE
     Dosage: UNK UNK, BEFORE GOING TO BED
     Route: 048
  3. XTANDI [Suspect]
     Active Substance: ENZALUTAMIDE
     Dosage: UNK UNK, UNKNOWN FREQ.
     Route: 048
  4. CLOTIAZEPAM [Concomitant]
     Active Substance: CLOTIAZEPAM
     Indication: Gastritis
     Dosage: 1 DF, ONCE DAILY, BEFORE GOING TO BED
     Route: 048
  5. CLOTIAZEPAM [Concomitant]
     Active Substance: CLOTIAZEPAM
     Indication: Initial insomnia
  6. GASTER [Concomitant]
     Active Substance: FAMOTIDINE
     Indication: Gastritis
     Dosage: 1 DF, ONCE DAILY, BEFORE GOING TO BED
     Route: 048
  7. GASTER [Concomitant]
     Active Substance: FAMOTIDINE
     Indication: Initial insomnia
  8. KETOPROFEN [Concomitant]
     Active Substance: KETOPROFEN
     Indication: Pain in extremity
     Dosage: UNK UNK, UNKNOWN FREQ.
     Route: 065
  9. ACETAMINOPHEN [Concomitant]
     Active Substance: ACETAMINOPHEN
     Indication: Headache
     Dosage: UNK UNK, UNKNOWN FREQ.
     Route: 048

REACTIONS (38)
  - Haemorrhage subcutaneous [Unknown]
  - Internal haemorrhage [Unknown]
  - Metastases to bone [Unknown]
  - Head discomfort [Unknown]
  - Tenosynovitis [Unknown]
  - Sleep disorder [Unknown]
  - Irritability [Unknown]
  - Tonsillitis [Unknown]
  - Nasal congestion [Unknown]
  - Musculoskeletal discomfort [Unknown]
  - Musculoskeletal pain [Unknown]
  - Musculoskeletal stiffness [Unknown]
  - Trigger finger [Unknown]
  - Wrist deformity [Unknown]
  - Mental fatigue [Unknown]
  - Oral discomfort [Unknown]
  - Oropharyngeal discomfort [Unknown]
  - Hypoaesthesia oral [Unknown]
  - Peripheral swelling [Unknown]
  - Musculoskeletal stiffness [Recovering/Resolving]
  - Cough [Unknown]
  - Chest discomfort [Unknown]
  - Nausea [Unknown]
  - Headache [Unknown]
  - Dizziness [Unknown]
  - Pain in extremity [Recovering/Resolving]
  - Platelet count decreased [Unknown]
  - Gastritis [Unknown]
  - Muscular weakness [Unknown]
  - Weight decreased [Unknown]
  - Arthralgia [Unknown]
  - Pain in extremity [Unknown]
  - Back pain [Unknown]
  - Insomnia [Unknown]
  - Asthenia [Unknown]
  - Middle insomnia [Unknown]
  - Insomnia [Unknown]
  - Nocturia [Unknown]
